FAERS Safety Report 9317074 (Version 1)
Quarter: 2013Q2

REPORT INFORMATION
  Report Type: Spontaneous
  Country: US (occurrence: None)
  Receive Date: 20130528
  Receipt Date: 20130528
  Transmission Date: 20140414
  Serious: Yes (Hospitalization, Other)
  Sender: FDA-Public Use
  Company Number: None

PATIENT
  Age: 58 Year
  Sex: Female

DRUGS (3)
  1. NEUTROGENA MOISTURE SHINE LIP GLOSS [Suspect]
     Dosage: AS NEEDED
     Route: 061
     Dates: end: 20130328
  2. PREDNISONE [Concomitant]
  3. HYDROXYZINE [Concomitant]

REACTIONS (1)
  - Anaphylactic shock [None]
